FAERS Safety Report 6046855-9 (Version None)
Quarter: 2009Q1

REPORT INFORMATION
  Report Type: 
  Country: None (occurrence: None)
  Receive Date: 20090122
  Receipt Date: 20090116
  Transmission Date: 20090719
  Serious: Yes (Hospitalization)
  Sender: FDA-Public Use
  Company Number: A0764407A

PATIENT
  Age: 60 Year
  Sex: Female
  Weight: 150 kg

DRUGS (2)
  1. AVANDIA [Suspect]
     Indication: TYPE 1 DIABETES MELLITUS
     Dosage: 4MG PER DAY
     Route: 048
     Dates: start: 20010418, end: 20011216
  2. INSULIN [Concomitant]

REACTIONS (10)
  - ANXIETY [None]
  - CARDIAC FAILURE CONGESTIVE [None]
  - CHEST PAIN [None]
  - DEPRESSION [None]
  - ECONOMIC PROBLEM [None]
  - EMOTIONAL DISORDER [None]
  - FATIGUE [None]
  - HEART INJURY [None]
  - PAIN [None]
  - QUALITY OF LIFE DECREASED [None]
